FAERS Safety Report 22146615 (Version 1)
Quarter: 2023Q1

REPORT INFORMATION
  Report Type: Spontaneous
  Country: CN (occurrence: CN)
  Receive Date: 20230328
  Receipt Date: 20230328
  Transmission Date: 20230418
  Serious: Yes (Other)
  Sender: FDA-Public Use
  Company Number: CN-PFIZER INC-202300125235

PATIENT
  Age: 68 Year
  Sex: Female

DRUGS (1)
  1. BESPONSA [Suspect]
     Active Substance: INOTUZUMAB OZOGAMICIN
     Indication: Acute leukaemia
     Dosage: UNK
     Route: 042
     Dates: start: 202302, end: 202302

REACTIONS (2)
  - Ascites [Recovered/Resolved]
  - Haemorrhagic ascites [Unknown]

NARRATIVE: CASE EVENT DATE: 20230101
